FAERS Safety Report 9382165 (Version 1)
Quarter: 2013Q3

REPORT INFORMATION
  Report Type: Spontaneous
  Country: JP (occurrence: JP)
  Receive Date: 20130703
  Receipt Date: 20130703
  Transmission Date: 20140515
  Serious: Yes (Hospitalization)
  Sender: FDA-Public Use
  Company Number: JP-009507513-1307JPN000684

PATIENT
  Age: 82 Year
  Sex: 0

DRUGS (2)
  1. DIAZOXIDE CAPSULES 25 MG ^MSD^ [Suspect]
     Indication: HYPOGLYCAEMIA
     Route: 048
  2. DEXTROSE [Concomitant]
     Indication: HYPOGLYCAEMIA

REACTIONS (1)
  - Adverse event [Unknown]
